FAERS Safety Report 20894769 (Version 1)
Quarter: 2022Q2

REPORT INFORMATION
  Report Type: Spontaneous
  Country: JP (occurrence: JP)
  Receive Date: 20220531
  Receipt Date: 20220531
  Transmission Date: 20220721
  Serious: Yes (Death, Other)
  Sender: FDA-Public Use
  Company Number: JP-OTSUKA-2022_029184

PATIENT
  Age: 62 Year
  Sex: Female

DRUGS (2)
  1. BUSULFEX [Suspect]
     Active Substance: BUSULFAN
     Indication: Stem cell transplant
     Dosage: 12.8MG/KG, UNK
     Route: 042
  2. FLUDARABINE PHOSPHATE [Suspect]
     Active Substance: FLUDARABINE PHOSPHATE
     Indication: Stem cell transplant
     Dosage: 150MG/M2, UNK
     Route: 065

REACTIONS (11)
  - Brain stem infarction [Fatal]
  - Aneurysm ruptured [Unknown]
  - Haematoma [Unknown]
  - Cellulitis orbital [Unknown]
  - Optic neuritis [Not Recovered/Not Resolved]
  - Sinusitis aspergillus [Unknown]
  - Bronchopulmonary aspergillosis [Unknown]
  - Febrile neutropenia [Unknown]
  - Fungal infection [Unknown]
  - Mucormycosis [Unknown]
  - Infective aneurysm [Unknown]
